FAERS Safety Report 24141836 (Version 6)
Quarter: 2025Q2

REPORT INFORMATION
  Report Type: Spontaneous
  Country: IN (occurrence: IN)
  Receive Date: 20240726
  Receipt Date: 20250616
  Transmission Date: 20250717
  Serious: Yes (Other)
  Sender: PFIZER
  Company Number: IN-PFIZER INC-PV202400049490

PATIENT
  Age: 77 Year
  Sex: Male
  Weight: 78.2 kg

DRUGS (5)
  1. CRIZOTINIB [Suspect]
     Active Substance: CRIZOTINIB
     Indication: Non-small cell lung cancer metastatic
     Dosage: 250 MG, 2X/DAY
     Route: 048
     Dates: start: 20221115
  2. CRIZOTINIB [Suspect]
     Active Substance: CRIZOTINIB
     Route: 048
     Dates: start: 202212, end: 202506
  3. CRIZOTINIB [Suspect]
     Active Substance: CRIZOTINIB
     Dosage: 250 MG, 2X/DAY
     Route: 048
  4. DOMSTAL [DOMPERIDONE] [Concomitant]
     Indication: Nausea
  5. DOMSTAL [DOMPERIDONE] [Concomitant]
     Indication: Vomiting

REACTIONS (9)
  - Metastases to central nervous system [Unknown]
  - Blood pressure increased [Unknown]
  - Non-small cell lung cancer metastatic [Unknown]
  - Malignant neoplasm progression [Unknown]
  - Cough [Recovered/Resolved]
  - Blood alkaline phosphatase increased [Not Recovered/Not Resolved]
  - Weight fluctuation [Unknown]
  - Pleural effusion [Unknown]
  - Body temperature decreased [Unknown]
